FAERS Safety Report 20573031 (Version 3)
Quarter: 2023Q4

REPORT INFORMATION
  Report Type: Report from Study
  Country: JP (occurrence: JP)
  Receive Date: 20220309
  Receipt Date: 20231225
  Transmission Date: 20240109
  Serious: Yes (Hospitalization)
  Sender: FDA-Public Use
  Company Number: JP-ABBVIE-22K-087-4307009-00

PATIENT
  Age: 74 Year
  Sex: Female
  Weight: 50 kg

DRUGS (6)
  1. RINVOQ [Suspect]
     Active Substance: UPADACITINIB
     Indication: Rheumatoid arthritis
     Route: 048
     Dates: start: 20210428, end: 20221215
  2. METHOTREXATE [Concomitant]
     Active Substance: METHOTREXATE
     Indication: Rheumatoid arthritis
     Dosage: 8 MG/WEEK
     Dates: end: 20210901
  3. CALCIUM CARBONATE\CHOLECALCIFEROL\MAGNESIUM CARBONATE [Concomitant]
     Active Substance: CALCIUM CARBONATE\CHOLECALCIFEROL\MAGNESIUM CARBONATE
     Indication: Product used for unknown indication
     Dosage: CHEWABLE?2 TABLET
     Route: 048
  4. MAGNESIUM OXIDE [Concomitant]
     Active Substance: MAGNESIUM OXIDE
     Indication: Product used for unknown indication
     Dates: start: 20211020
  5. ZOLPIDEM TARTRATE [Concomitant]
     Active Substance: ZOLPIDEM TARTRATE
     Indication: Product used for unknown indication
  6. FOLIC ACID [Concomitant]
     Active Substance: FOLIC ACID
     Indication: Product used for unknown indication
     Dosage: 5 MG/WEEK
     Dates: start: 20210901

REACTIONS (1)
  - Shoulder arthroplasty [Recovered/Resolved]

NARRATIVE: CASE EVENT DATE: 20210928
